FAERS Safety Report 24375929 (Version 1)
Quarter: 2024Q3

REPORT INFORMATION
  Report Type: Spontaneous
  Country: GB (occurrence: GB)
  Receive Date: 20240928
  Receipt Date: 20240928
  Transmission Date: 20241016
  Serious: Yes (Life-Threatening, Other)
  Sender: PROVEPHARM
  Company Number: GB-Provepharm-2162157

PATIENT
  Sex: Female

DRUGS (1)
  1. PROVAYBLUE [Suspect]
     Active Substance: METHYLENE BLUE

REACTIONS (1)
  - Cardiac arrest [Recovered/Resolved]
